FAERS Safety Report 7841205-7 (Version None)
Quarter: 2011Q4

REPORT INFORMATION
  Report Type: 
  Country: None (occurrence: None)
  Receive Date: 20111020
  Receipt Date: 20111011
  Transmission Date: 20120403
  Serious: Yes (Death)
  Sender: FDA-Public Use
  Company Number: DKLU1073882

PATIENT
  Age: 27 Year
  Sex: Female

DRUGS (1)
  1. SABRIL [Suspect]
     Indication: INFANTILE SPASMS
     Dosage: 500 MG MILLIGRAM(S), EVERY MORNING, ORAL ; 1000 MG MILLIGRAM(S), EVERY MORNING, ORAL
     Route: 048

REACTIONS (1)
  - DEATH [None]
